FAERS Safety Report 7652596-4 (Version None)
Quarter: 2011Q3

REPORT INFORMATION
  Report Type: 
  Country: None (occurrence: None)
  Receive Date: 20110722
  Receipt Date: 20110429
  Transmission Date: 20111222
  Serious: Yes (Hospitalization)
  Sender: FDA-Public Use
  Company Number: UTC-006799

PATIENT
  Age: 46 Year
  Sex: Male
  Weight: 94.8 kg

DRUGS (2)
  1. REMODULIN [Suspect]
     Indication: PORTAL HYPERTENSION
     Dosage: 43.2 UG/KG (0.03 UG/KG,1 IN 1 MIN),INTRAVENOUS
     Route: 042
     Dates: start: 20110225
  2. DIURETICS (DIURETICS) [Concomitant]

REACTIONS (10)
  - DECREASED APPETITE [None]
  - NAUSEA [None]
  - BACK PAIN [None]
  - VOMITING [None]
  - ABDOMINAL DISTENSION [None]
  - HEADACHE [None]
  - OEDEMA [None]
  - CHILLS [None]
  - DIARRHOEA [None]
  - RENAL DISORDER [None]
